FAERS Safety Report 15478348 (Version 1)
Quarter: 2018Q4

REPORT INFORMATION
  Report Type: Spontaneous
  Country: US (occurrence: US)
  Receive Date: 20181009
  Receipt Date: 20181009
  Transmission Date: 20190205
  Serious: Yes (Other)
  Sender: FDA-Public Use
  Company Number: US-SA-2017SA267130

PATIENT
  Age: 45 Year
  Sex: Female
  Weight: 90.71 kg

DRUGS (7)
  1. TAXOTERE [Suspect]
     Active Substance: DOCETAXEL
     Dosage: 164 MG, Q3W
     Route: 042
     Dates: start: 20090902, end: 20090902
  2. PARAPLATIN [Concomitant]
     Active Substance: CARBOPLATIN
  3. NEOSAR [Concomitant]
     Active Substance: CYCLOPHOSPHAMIDE
  4. GEMZAR [Concomitant]
     Active Substance: GEMCITABINE HYDROCHLORIDE
  5. TAXOTERE [Suspect]
     Active Substance: DOCETAXEL
     Indication: BREAST CANCER FEMALE
     Dosage: 164 MG, Q3W
     Route: 042
     Dates: start: 20090415, end: 20090415
  6. DOXORUBICIN [Concomitant]
     Active Substance: DOXORUBICIN
  7. TAXOL [Concomitant]
     Active Substance: PACLITAXEL

REACTIONS (1)
  - Alopecia [Recovering/Resolving]

NARRATIVE: CASE EVENT DATE: 20101010
